FAERS Safety Report 9251575 (Version 1)
Quarter: 2013Q1

REPORT INFORMATION
  Report Type: Spontaneous
  Country: US (occurrence: None)
  Receive Date: 20130305
  Receipt Date: 20130305
  Transmission Date: 20140127
  Serious: Yes (Other)
  Sender: FDA-Public Use
  Company Number: 163-21880-12090191

PATIENT
  Age: 79 Year
  Sex: Female

DRUGS (3)
  1. REVLIMID [Suspect]
     Indication: PLASMA CELL MYELOMA
     Dosage: 25 MG, 21 IN 28 D, PO
     Dates: start: 20120215
  2. ZOMETA (ZOLEDRONIC ACID) [Concomitant]
  3. ARANESP (DARBEPOETIN ALFA) [Concomitant]

REACTIONS (3)
  - Insomnia [None]
  - Neuropathy peripheral [None]
  - Oedema peripheral [None]
